FAERS Safety Report 5026787-5 (Version None)
Quarter: 2006Q2

REPORT INFORMATION
  Report Type: 
  Country: None (occurrence: None)
  Receive Date: 20060615
  Receipt Date: 20060425
  Transmission Date: 20061013
  Serious: Yes (Life-Threatening)
  Sender: FDA-Public Use
  Company Number: 2006AP01927

PATIENT
  Age: 27497 Day
  Sex: Male
  Weight: 51 kg

DRUGS (6)
  1. IRESSA [Suspect]
     Indication: LUNG NEOPLASM MALIGNANT
     Route: 048
     Dates: start: 20030519
  2. MELBIN [Concomitant]
     Indication: DIABETES MELLITUS
     Route: 048
     Dates: end: 20030528
  3. BASEN [Concomitant]
     Indication: DIABETES MELLITUS
     Route: 048
  4. AMARYL [Concomitant]
     Indication: DIABETES MELLITUS
     Route: 048
  5. NEUQUINON [Concomitant]
     Indication: CARDIAC FAILURE
     Route: 048
  6. NICHISTATE [Concomitant]
     Indication: CEREBRAL INFARCTION
     Route: 048

REACTIONS (1)
  - HYPOGLYCAEMIA [None]
